FAERS Safety Report 15276132 (Version 1)
Quarter: 2018Q3

REPORT INFORMATION
  Report Type: Spontaneous
  Country: US (occurrence: US)
  Receive Date: 20180728
  Receipt Date: 20180728
  Transmission Date: 20181010
  Serious: Yes (Hospitalization, Disabling)
  Sender: FDA-Public Use
  Company Number: None

PATIENT
  Age: 41 Year
  Sex: Female
  Weight: 71.1 kg

DRUGS (1)
  1. PITOCIN [Suspect]
     Active Substance: OXYTOCIN
     Indication: ANAESTHESIA
     Dosage: ?          OTHER FREQUENCY:IV;?
     Route: 042
     Dates: start: 20180318, end: 20180318

REACTIONS (3)
  - Menstruation irregular [None]
  - Uterine haemorrhage [None]
  - Drug administration error [None]

NARRATIVE: CASE EVENT DATE: 20180318
